FAERS Safety Report 13828848 (Version 1)
Quarter: 2017Q3

REPORT INFORMATION
  Report Type: Spontaneous
  Country: US (occurrence: US)
  Receive Date: 20170802
  Receipt Date: 20170802
  Transmission Date: 20171127
  Serious: Yes (Disabling)
  Sender: FDA-Public Use
  Company Number: None

PATIENT
  Age: 61 Year
  Sex: Female
  Weight: 55.8 kg

DRUGS (7)
  1. ARMOUR THYROID [Concomitant]
     Active Substance: THYROID, PORCINE
  2. METHYLPHENIDATE CD 30 MG CAP [Suspect]
     Active Substance: METHYLPHENIDATE HYDROCHLORIDE
     Indication: ATTENTION DEFICIT/HYPERACTIVITY DISORDER
     Dosage: ?          QUANTITY:90 CAPSULE(S);?
     Route: 048
     Dates: start: 20170731, end: 20170802
  3. METHYLPHENIDATE. [Concomitant]
     Active Substance: METHYLPHENIDATE
  4. BELSOMRA [Concomitant]
     Active Substance: SUVOREXANT
  5. HCTZ [Concomitant]
     Active Substance: HYDROCHLOROTHIAZIDE
  6. HYDROCODONE [Concomitant]
     Active Substance: HYDROCODONE
  7. WELLBUTRIN XL [Concomitant]
     Active Substance: BUPROPION HYDROCHLORIDE

REACTIONS (7)
  - Affective disorder [None]
  - Bruxism [None]
  - Headache [None]
  - Drug ineffective [None]
  - Hypertension [None]
  - Product substitution issue [None]
  - Tremor [None]

NARRATIVE: CASE EVENT DATE: 20170731
